FAERS Safety Report 13084934 (Version 1)
Quarter: 2017Q1

REPORT INFORMATION
  Report Type: Spontaneous
  Country: IT (occurrence: IT)
  Receive Date: 20170104
  Receipt Date: 20170104
  Transmission Date: 20170428
  Serious: Yes (Hospitalization)
  Sender: FDA-Public Use
  Company Number: IT-DSJP-DSE-2017-100021

PATIENT

DRUGS (8)
  1. OLPREZIDE 20 MG/12,5 MG [Suspect]
     Active Substance: HYDROCHLOROTHIAZIDE\OLMESARTAN MEDOXOMIL
     Indication: PRODUCT USED FOR UNKNOWN INDICATION
     Dosage: 20MG/12,5 MG, QD
     Route: 048
     Dates: start: 20161003, end: 20161003
  2. LANSOX [Concomitant]
     Active Substance: LANSOPRAZOLE
     Indication: PRODUCT USED FOR UNKNOWN INDICATION
     Route: 048
  3. AKINETON [Interacting]
     Active Substance: BIPERIDEN HYDROCHLORIDE
     Indication: PRODUCT USED FOR UNKNOWN INDICATION
     Dosage: 4 MG, SINGLE
     Route: 048
     Dates: start: 20161003, end: 20161003
  4. EN [Interacting]
     Active Substance: DELORAZEPAM
     Indication: PRODUCT USED FOR UNKNOWN INDICATION
     Dosage: 5 GTT, SINGLE
     Route: 048
     Dates: start: 20161003, end: 20161003
  5. PALEXIA [Interacting]
     Active Substance: TAPENTADOL HYDROCHLORIDE
     Indication: PRODUCT USED FOR UNKNOWN INDICATION
     Dosage: 200 MG, SINGLE
     Route: 048
     Dates: start: 20161003, end: 20161003
  6. LYRICA [Interacting]
     Active Substance: PREGABALIN
     Indication: PRODUCT USED FOR UNKNOWN INDICATION
     Dosage: 150 MG, SINGLE
     Route: 048
     Dates: start: 20161003, end: 20161003
  7. SERENASE                           /00027401/ [Interacting]
     Active Substance: HALOPERIDOL
     Indication: PRODUCT USED FOR UNKNOWN INDICATION
     Dosage: 10 GTT, SINGLE
     Route: 048
     Dates: start: 20161003, end: 20161003
  8. ZOLOFT [Interacting]
     Active Substance: SERTRALINE HYDROCHLORIDE
     Indication: PRODUCT USED FOR UNKNOWN INDICATION
     Dosage: 50 MG, SINGLE
     Route: 048
     Dates: start: 20161003, end: 20161003

REACTIONS (6)
  - Somnolence [Recovering/Resolving]
  - Drug interaction [Recovered/Resolved]
  - Hyponatraemia [Recovering/Resolving]
  - Slow speech [Recovering/Resolving]
  - Confusional state [Recovering/Resolving]
  - Drug abuse [Recovered/Resolved]

NARRATIVE: CASE EVENT DATE: 20161003
